FAERS Safety Report 6880278-5 (Version None)
Quarter: 2010Q3

REPORT INFORMATION
  Report Type: 
  Country: None (occurrence: None)
  Receive Date: 20100728
  Receipt Date: 20091008
  Transmission Date: 20110219
  Serious: No
  Sender: FDA-Public Use
  Company Number: US-BRISTOL-MYERS SQUIBB COMPANY-14811715

PATIENT
  Age: 70 Year
  Sex: Female

DRUGS (1)
  1. GLUCOVANCE [Suspect]

REACTIONS (1)
  - GASTROINTESTINAL DISORDER [None]
